FAERS Safety Report 7639782-4 (Version None)
Quarter: 2011Q3

REPORT INFORMATION
  Report Type: 
  Country: None (occurrence: None)
  Receive Date: 20110727
  Receipt Date: 20110718
  Transmission Date: 20111222
  Serious: Yes (Other)
  Sender: FDA-Public Use
  Company Number: PHHY2011US32320

PATIENT
  Sex: Male
  Weight: 95.238 kg

DRUGS (3)
  1. LISINOPRIL [Concomitant]
     Dosage: 2.5 MG, UNK
  2. OXCARBAZEPINE [Concomitant]
     Dosage: 150 MG, UNK
  3. GILENYA [Suspect]
     Indication: MULTIPLE SCLEROSIS
     Dosage: 0.5 MG, QD
     Route: 048
     Dates: start: 20110406

REACTIONS (11)
  - VIITH NERVE PARALYSIS [None]
  - VOMITING [None]
  - RASH GENERALISED [None]
  - DIARRHOEA [None]
  - HEARING IMPAIRED [None]
  - NAUSEA [None]
  - FATIGUE [None]
  - HEADACHE [None]
  - PYREXIA [None]
  - NIGHT SWEATS [None]
  - TRIGEMINAL NEURALGIA [None]
